FAERS Safety Report 10161619 (Version 1)
Quarter: 2014Q2

REPORT INFORMATION
  Report Type: Other
  Country: FR (occurrence: FR)
  Receive Date: 20140509
  Receipt Date: 20140509
  Transmission Date: 20141212
  Serious: Yes (Life-Threatening, Hospitalization)
  Sender: FDA-Public Use
  Company Number: FR-SUN PHARMACEUTICAL INDUSTRIES LTD-2014SUN00998

PATIENT
  Age: 22 Year
  Sex: Male

DRUGS (2)
  1. TEMOZOLOMIDE [Suspect]
     Indication: GLIOMATOSIS CEREBRI
     Dosage: 340 MG, DAILY
     Route: 048
     Dates: start: 201207
  2. TEMOZOLOMIDE [Suspect]
     Dosage: 360 MG, DAILY
     Route: 048
     Dates: start: 20140208, end: 20140212

REACTIONS (2)
  - Febrile bone marrow aplasia [Recovered/Resolved]
  - Inflammation [Recovered/Resolved]
